FAERS Safety Report 25277463 (Version 4)
Quarter: 2025Q2

REPORT INFORMATION
  Report Type: Spontaneous
  Country: JP (occurrence: JP)
  Receive Date: 20250507
  Receipt Date: 20250630
  Transmission Date: 20250716
  Serious: Yes (Hospitalization)
  Sender: ORGANON
  Company Number: JP-JT-EVA202502084Dermavant Sciences Inc.

PATIENT
  Age: 78 Year
  Sex: Male

DRUGS (4)
  1. VTAMA [Suspect]
     Active Substance: TAPINAROF
     Route: 061
     Dates: start: 20250122, end: 20250409
  2. CINAL [ASCORBIC ACID;CALCIUM PANTOTHENATE] [Concomitant]
     Route: 048
  3. LANSOPRAZOLE [Concomitant]
     Active Substance: LANSOPRAZOLE
     Route: 065
  4. OTEZLA [Concomitant]
     Active Substance: APREMILAST
     Route: 048

REACTIONS (6)
  - Drug eruption [Unknown]
  - Swelling [Unknown]
  - Skin haemorrhage [Unknown]
  - Pain of skin [Unknown]
  - Systemic contact dermatitis [Recovering/Resolving]
  - Dizziness [Unknown]

NARRATIVE: CASE EVENT DATE: 20250301
